FAERS Safety Report 15009592 (Version 1)
Quarter: 2018Q2

REPORT INFORMATION
  Report Type: Spontaneous
  Country: PT (occurrence: PT)
  Receive Date: 20180614
  Receipt Date: 20180614
  Transmission Date: 20180711
  Serious: Yes (Life-Threatening, Hospitalization, Disabling)
  Sender: FDA-Public Use
  Company Number: PT-TEVA-2018-PT-906109

PATIENT
  Age: 51 Year
  Sex: Female

DRUGS (2)
  1. TRAMADOL. [Suspect]
     Active Substance: TRAMADOL
     Indication: SCIATICA
     Route: 042
     Dates: start: 20171026, end: 20171026
  2. METOCLOPRAMIDE. [Concomitant]
     Active Substance: METOCLOPRAMIDE
     Route: 042
     Dates: start: 20171026, end: 20171026

REACTIONS (1)
  - Cerebral vasoconstriction [Unknown]

NARRATIVE: CASE EVENT DATE: 20171026
